FAERS Safety Report 7005599-7 (Version None)
Quarter: 2010Q3

REPORT INFORMATION
  Report Type: 
  Country: None (occurrence: None)
  Receive Date: 20100921
  Receipt Date: 20100915
  Transmission Date: 20110219
  Serious: Yes (Death)
  Sender: FDA-Public Use
  Company Number: A0881708A

PATIENT
  Sex: Male
  Weight: 70 kg

DRUGS (2)
  1. SERETIDE [Suspect]
     Indication: EMPHYSEMA
     Dosage: 1PUFF TWICE PER DAY
     Route: 055
     Dates: start: 20050101, end: 20100605
  2. PERINDOPRIL ERBUMINE [Concomitant]
     Dosage: 1TAB PER DAY
     Dates: start: 20080101

REACTIONS (1)
  - LUNG NEOPLASM MALIGNANT [None]
